FAERS Safety Report 8345094-6 (Version None)
Quarter: 2012Q2

REPORT INFORMATION
  Report Type: 
  Country: None (occurrence: None)
  Receive Date: 20120508
  Receipt Date: 20120501
  Transmission Date: 20120825
  Serious: No
  Sender: FDA-Public Use
  Company Number: US-BAYER-2012-043735

PATIENT
  Age: 30 Year
  Sex: Male
  Weight: 107 kg

DRUGS (2)
  1. NAPROXEN SODIUM [Suspect]
     Indication: HEADACHE
     Dosage: 24 DF, ONCE
     Route: 048
     Dates: start: 20120501
  2. ALBUTEROL [Concomitant]
     Dosage: UNK UNK, PRN
     Route: 055

REACTIONS (1)
  - RETCHING [None]
